FAERS Safety Report 25793049 (Version 3)
Quarter: 2025Q3

REPORT INFORMATION
  Report Type: Spontaneous
  Country: US (occurrence: US)
  Receive Date: 20250911
  Receipt Date: 20250918
  Transmission Date: 20251021
  Serious: Yes (Other)
  Sender: PFIZER
  Company Number: US-PFIZER INC-PV202500109702

PATIENT
  Age: 43 Year
  Sex: Female

DRUGS (3)
  1. NURTEC ODT [Interacting]
     Active Substance: RIMEGEPANT SULFATE
     Route: 048
     Dates: start: 20250909
  2. ASPIRIN [Interacting]
     Active Substance: ASPIRIN
  3. TYLENOL EXTRA STRENGTH [Interacting]
     Active Substance: ACETAMINOPHEN

REACTIONS (10)
  - Drug interaction [Unknown]
  - Dizziness [Unknown]
  - Somnolence [Unknown]
  - Confusional state [Unknown]
  - Pain in jaw [Unknown]
  - Hypotension [Unknown]
  - Asthenia [Unknown]
  - Vomiting [Unknown]
  - Food intolerance [Unknown]
  - Migraine [Recovered/Resolved]

NARRATIVE: CASE EVENT DATE: 20250901
